FAERS Safety Report 5417034-0 (Version None)
Quarter: 2007Q3

REPORT INFORMATION
  Report Type: 
  Country: None (occurrence: None)
  Receive Date: 20070816
  Receipt Date: 20070802
  Transmission Date: 20080115
  Serious: Yes (Hospitalization, Other)
  Sender: FDA-Public Use
  Company Number: AU-ELI_LILLY_AND_COMPANY-AU_050908937

PATIENT
  Age: 29 Year
  Sex: Male

DRUGS (4)
  1. ZYPREXA [Suspect]
     Route: 048
     Dates: start: 20020101, end: 20040601
  2. ZYPREXA [Suspect]
  3. CHLORPROMAZINE [Concomitant]
     Dosage: 100 MG, DAILY (1/D)
  4. VENTOLIN [Concomitant]
     Dosage: UNK, AS NEEDED

REACTIONS (2)
  - PANCREATITIS NECROTISING [None]
  - PSEUDOCYST [None]
